FAERS Safety Report 5605147-X (Version None)
Quarter: 2008Q1

REPORT INFORMATION
  Report Type: 
  Country: None (occurrence: None)
  Receive Date: 20080128
  Receipt Date: 20080122
  Transmission Date: 20080703
  Serious: Yes (Death)
  Sender: FDA-Public Use
  Company Number: JP-PFIZER INC-2008004342

PATIENT
  Sex: Male

DRUGS (4)
  1. ESTRACYT [Suspect]
     Dosage: DAILY DOSE:156.7MG
     Route: 048
  2. ESTRACYT [Suspect]
     Dosage: DAILY DOSE:626.8MG
     Route: 048
     Dates: start: 20071204, end: 20071208
  3. DOCETAXEL [Suspect]
     Dosage: DAILY DOSE:70MG
     Dates: start: 20071205, end: 20071205
  4. DEXAMETHASONE TAB [Concomitant]

REACTIONS (1)
  - RENAL FAILURE ACUTE [None]
